FAERS Safety Report 21380215 (Version 1)
Quarter: 2022Q3

REPORT INFORMATION
  Report Type: Spontaneous
  Country: DE (occurrence: DE)
  Receive Date: 20220927
  Receipt Date: 20220927
  Transmission Date: 20221027
  Serious: Yes (Other)
  Sender: FDA-Public Use
  Company Number: DE-JNJFOC-A-CH2019-188010

PATIENT
  Age: 56 Year
  Sex: Female

DRUGS (2)
  1. TADALAFIL [Suspect]
     Active Substance: TADALAFIL
     Indication: Portopulmonary hypertension
     Route: 065
  2. OPSUMIT [Suspect]
     Active Substance: MACITENTAN
     Indication: Portopulmonary hypertension
     Route: 048

REACTIONS (5)
  - Hypoxia [Recovering/Resolving]
  - Dyspnoea exertional [Recovering/Resolving]
  - Concomitant disease aggravated [Recovering/Resolving]
  - Ventilation perfusion mismatch [Recovering/Resolving]
  - Hepatopulmonary syndrome [Recovering/Resolving]
